FAERS Safety Report 24254739 (Version 1)
Quarter: 2024Q3

REPORT INFORMATION
  Report Type: Spontaneous
  Country: ZA (occurrence: None)
  Receive Date: 20240827
  Receipt Date: 20240827
  Transmission Date: 20241017
  Serious: Yes (Death)
  Sender: ASTRAZENECA
  Company Number: 2024A192044

PATIENT
  Age: 24837 Day
  Sex: Male

DRUGS (9)
  1. DAPAGLIFLOZIN PROPANEDIOL [Suspect]
     Active Substance: DAPAGLIFLOZIN PROPANEDIOL
     Indication: Type 2 diabetes mellitus
     Route: 048
  2. ATORVASTATIN [Concomitant]
     Active Substance: ATORVASTATIN
     Indication: Blood cholesterol
  3. FUROSEMIDE [Concomitant]
     Active Substance: FUROSEMIDE
     Indication: Cardiac failure
  4. FUROSEMIDE [Concomitant]
     Active Substance: FUROSEMIDE
     Indication: Oedema
  5. FUROSEMIDE [Concomitant]
     Active Substance: FUROSEMIDE
     Indication: Cardiac failure
  6. FUROSEMIDE [Concomitant]
     Active Substance: FUROSEMIDE
     Indication: Hepatic cirrhosis
  7. FUROSEMIDE [Concomitant]
     Active Substance: FUROSEMIDE
     Indication: Renal impairment
  8. AMIODARONE [Concomitant]
     Active Substance: AMIODARONE
     Indication: Arrhythmia
  9. AMIODARONE [Concomitant]
     Active Substance: AMIODARONE
     Indication: Arrhythmia

REACTIONS (1)
  - Death [Fatal]

NARRATIVE: CASE EVENT DATE: 20240804
